FAERS Safety Report 6891652-5 (Version None)
Quarter: 2010Q3

REPORT INFORMATION
  Report Type: 
  Country: None (occurrence: None)
  Receive Date: 20100731
  Receipt Date: 20070917
  Transmission Date: 20110219
  Serious: Yes (Other)
  Sender: FDA-Public Use
  Company Number: US-PFIZER INC-2007078380

PATIENT
  Sex: Female
  Weight: 50.8 kg

DRUGS (7)
  1. NEURONTIN [Suspect]
     Indication: NEUROPATHY PERIPHERAL
     Dates: start: 20000101
  2. ARICEPT [Suspect]
     Indication: AMNESIA
     Dates: start: 20070901
  3. ACETYLSALICYLIC ACID SRT [Concomitant]
  4. PLAQUENIL [Concomitant]
  5. FOLIC ACID [Concomitant]
  6. SYNTHROID [Concomitant]
  7. LEXAPRO [Concomitant]

REACTIONS (5)
  - AMNESIA [None]
  - DRUG INEFFECTIVE [None]
  - FOOD CRAVING [None]
  - HEADACHE [None]
  - MUSCLE SPASMS [None]
